FAERS Safety Report 17761486 (Version 1)
Quarter: 2020Q2

REPORT INFORMATION
  Report Type: Report from Study
  Country: IN (occurrence: IN)
  Receive Date: 20200508
  Receipt Date: 20200508
  Transmission Date: 20200714
  Serious: Yes (Other)
  Sender: FDA-Public Use
  Company Number: NVSC2020IN123024

PATIENT
  Age: 34 Year
  Sex: Female

DRUGS (2)
  1. TASIGNA [Suspect]
     Active Substance: NILOTINIB
     Dosage: 150 MG, BID
     Route: 042
     Dates: start: 20190412
  2. TASIGNA [Suspect]
     Active Substance: NILOTINIB
     Indication: CHRONIC MYELOID LEUKAEMIA
     Dosage: 300 MG, BID
     Route: 042
     Dates: start: 201403, end: 20190411

REACTIONS (4)
  - Maternal exposure during pregnancy [Unknown]
  - Rash [Recovering/Resolving]
  - Dengue fever [Recovered/Resolved]
  - Constipation [Recovering/Resolving]

NARRATIVE: CASE EVENT DATE: 201405
